FAERS Safety Report 8415681-5 (Version None)
Quarter: 2012Q2

REPORT INFORMATION
  Report Type: 
  Country: None (occurrence: None)
  Receive Date: 20120606
  Receipt Date: 20120529
  Transmission Date: 20120825
  Serious: Yes (Other)
  Sender: FDA-Public Use
  Company Number: PHEH2012US011247

PATIENT
  Sex: Female

DRUGS (5)
  1. FUROSEMIDE [Concomitant]
     Indication: POLYURIA
     Dosage: 1 DF, QD
     Route: 048
  2. AMLODIPINE [Concomitant]
     Indication: BLOOD PRESSURE ABNORMAL
     Dosage: 1 DF, QD
     Route: 048
  3. LIPITOR [Concomitant]
     Indication: BLOOD CHOLESTEROL ABNORMAL
     Dosage: 20 MG, QD
     Route: 048
  4. VALTURNA [Suspect]
     Indication: BLOOD PRESSURE
     Dosage: 1 DF (300 MG ALISKIREN/320 MG VALSARTAN), QD
     Route: 048
     Dates: end: 20120529
  5. INSULIN [Concomitant]
     Indication: DIABETES MELLITUS
     Dosage: 50 U, BID

REACTIONS (1)
  - DEMENTIA [None]
